FAERS Safety Report 9028671 (Version 1)
Quarter: 2013Q1

REPORT INFORMATION
  Report Type: Spontaneous
  Country: US (occurrence: US)
  Receive Date: 20130124
  Receipt Date: 20130124
  Transmission Date: 20140127
  Serious: Yes (Life-Threatening)
  Sender: FDA-Public Use
  Company Number: PHEH2013US001839

PATIENT
  Sex: Female

DRUGS (4)
  1. VALSARTAN + HCT [Suspect]
     Dosage: 1 DF(160 VALS/25 MG HCT) QD
     Route: 048
  2. SIMVASTATIN [Concomitant]
     Dosage: UNK UKN, UNK
  3. SPIRIVA [Concomitant]
     Dosage: UNK UKN, UNK
  4. ASPIRIN [Concomitant]
     Dosage: 81 MG, UNK

REACTIONS (5)
  - Malaise [Unknown]
  - Muscle disorder [Unknown]
  - Arthropathy [Unknown]
  - Ligament disorder [Unknown]
  - Movement disorder [Unknown]
